FAERS Safety Report 19803841 (Version 2)
Quarter: 2021Q3

REPORT INFORMATION
  Report Type: Spontaneous
  Country: NL (occurrence: NL)
  Receive Date: 20210908
  Receipt Date: 20210924
  Transmission Date: 20211014
  Serious: Yes (Life-Threatening, Hospitalization, Disabling, Other)
  Sender: FDA-Public Use
  Company Number: NL-TEVA-2021-NL-1950392

PATIENT
  Age: 21 Year
  Sex: Female
  Weight: 61.5 kg

DRUGS (1)
  1. ETHINYLESTRADIOL/LEVONORGESTREL TABLET 30/150UG / BRAND NAME NOT SPECI [Suspect]
     Active Substance: ETHINYL ESTRADIOL\LEVONORGESTREL
     Indication: MENSTRUAL DISCOMFORT
     Dosage: 1X PER DAY 1 PIECE FOR 21 DAYS, THEN 7 DAYS REST
     Dates: start: 2018, end: 20210713

REACTIONS (1)
  - Cerebral infarction [Recovering/Resolving]

NARRATIVE: CASE EVENT DATE: 20210705
